FAERS Safety Report 7440159-5 (Version None)
Quarter: 2011Q2

REPORT INFORMATION
  Report Type: 
  Country: None (occurrence: None)
  Receive Date: 20110427
  Receipt Date: 20110418
  Transmission Date: 20111010
  Serious: Yes (Other)
  Sender: FDA-Public Use
  Company Number: US-ROCHE-773059

PATIENT

DRUGS (3)
  1. BEVACIZUMAB [Suspect]
     Indication: NEOPLASM MALIGNANT
     Dosage: PRIOR THERAPY
     Route: 042
  2. VANDETANIB [Suspect]
     Indication: NEOPLASM MALIGNANT
     Dosage: FROM DAY 1-21.
     Route: 048
  3. BEVACIZUMAB [Suspect]
     Dosage: DAY 1 OF EVERY 21 DAY CYCLE
     Route: 042

REACTIONS (2)
  - BLOOD CREATININE INCREASED [None]
  - HYPERTENSION [None]
